FAERS Safety Report 11784253 (Version 1)
Quarter: 2015Q4

REPORT INFORMATION
  Report Type: Spontaneous
  Country: US (occurrence: US)
  Receive Date: 20151128
  Receipt Date: 20151128
  Transmission Date: 20160305
  Serious: Yes (Hospitalization, Other)
  Sender: FDA-Public Use
  Company Number: US-AMGEN-USASP2015125339

PATIENT
  Age: 72 Year
  Sex: Female
  Weight: 72.11 kg

DRUGS (18)
  1. LOSARTAN POTASSIUM. [Concomitant]
     Active Substance: LOSARTAN POTASSIUM
     Indication: HYPERTENSION
     Dosage: 50 MG, DAILY
     Route: 048
  2. PANTOPRAZOLE SODIUM. [Concomitant]
     Active Substance: PANTOPRAZOLE SODIUM
     Dosage: 20 MG, ONCE DAILY 30 DAYS
  3. VENLAFAXINE HCL [Concomitant]
     Active Substance: VENLAFAXINE HYDROCHLORIDE
     Dosage: 100 MG, TAKE ONE TABLET BY MOUTH TWO TIMES A DAY
     Route: 048
  4. METHOCARBAMOL. [Concomitant]
     Active Substance: METHOCARBAMOL
     Dosage: 500 MG, ONCE DAILY
  5. ZOSTAVAX [Concomitant]
     Active Substance: VARICELLA-ZOSTER VIRUS STRAIN OKA/MERCK LIVE ANTIGEN
     Dosage: 19400 UNT/0.65ML SOLUTION RECONSTITUTED SOLR
     Route: 058
  6. FUROSEMIDE. [Concomitant]
     Active Substance: FUROSEMIDE
     Dosage: 20 MG, TAKE ONE TABLET BY MOUTH DAILY
     Route: 048
  7. AMIODARONE [Concomitant]
     Active Substance: AMIODARONE
     Indication: HYPERTENSION
     Dosage: UNK
  8. TOPAMAX [Concomitant]
     Active Substance: TOPIRAMATE
     Dosage: 50 MG, 1 TWICE A DAY
  9. CLOPIDOGREL BISULFATE. [Concomitant]
     Active Substance: CLOPIDOGREL BISULFATE
     Dosage: 75 MG, DAILY
     Route: 048
  10. DIALYVITE 5000 [Concomitant]
     Active Substance: .ALPHA.-TOCOPHEROL SUCCINATE, D-\ASCORBIC ACID\BIOTIN\CALCIUM PANTOTHENATE\COBALAMIN\FOLIC ACID\NIACINAMIDE\PYRIDOXINE HYDROCHLORIDE\RIBOFLAVIN\SELENOCYSTEINE\THIAMINE MONONITRATE\ZINC CITRATE
     Dosage: UNK UNK,1 QD
  11. NITROFURANTOIN MACROCRYSTALS [Concomitant]
     Active Substance: NITROFURANTOIN
     Dosage: 50 MG, ONCE DAILY
  12. PLAVIX [Concomitant]
     Active Substance: CLOPIDOGREL BISULFATE
     Indication: CORONARY ARTERY DISEASE
     Dosage: UNK
  13. SPIRONOLACTONE. [Concomitant]
     Active Substance: SPIRONOLACTONE
     Dosage: 25 MG, TAKE ONE TABLET BY MOUTH TWO TIMES A DAY
     Route: 048
  14. ALPRAZOLAM. [Concomitant]
     Active Substance: ALPRAZOLAM
     Dosage: 0.5 MG, THREE TIMES DAILY
     Route: 048
  15. FUROSEMIDE. [Concomitant]
     Active Substance: FUROSEMIDE
     Dosage: 20 MG, USE AS DIRECTED 2-3 TIMES A WEEK AS NEEDED
  16. NITROSTAT [Concomitant]
     Active Substance: NITROGLYCERIN
     Dosage: 0.4 MG, USE AS DIRECTED 30 DAYS
  17. PROCRIT [Suspect]
     Active Substance: ERYTHROPOIETIN
     Indication: ANAEMIA OF CHRONIC DISEASE
     Dosage: UNK
     Route: 065
  18. ATENOLOL. [Concomitant]
     Active Substance: ATENOLOL
     Indication: HYPERTENSION
     Dosage: 25 MG, DAILY
     Route: 048

REACTIONS (61)
  - Infarction [Unknown]
  - Haemorrhoids [Unknown]
  - Irritable bowel syndrome [Unknown]
  - Panic attack [Unknown]
  - Vitamin B12 deficiency [Unknown]
  - Ischaemic cerebral infarction [Unknown]
  - Arterial stenosis [Unknown]
  - Anxiety disorder [Unknown]
  - Diverticulum intestinal [Unknown]
  - Stress [Unknown]
  - Back pain [Unknown]
  - Sleep apnoea syndrome [Unknown]
  - Osteoporosis postmenopausal [Unknown]
  - Urinary tract infection [Unknown]
  - Dysphagia [Unknown]
  - Aortic valve incompetence [Unknown]
  - Mental status changes [Unknown]
  - Aortic arteriosclerosis [Unknown]
  - Neck pain [Unknown]
  - Prolapse [Unknown]
  - Oesophagitis [Unknown]
  - Essential hypertension [Unknown]
  - Fibromyalgia [Unknown]
  - Hiatus hernia [Unknown]
  - Hyperlipidaemia [Unknown]
  - Incontinence [Unknown]
  - Lactose intolerance [Unknown]
  - Osteoarthritis [Unknown]
  - Oesophageal stenosis [Unknown]
  - Peptic ulcer [Unknown]
  - VIIth nerve paralysis [Unknown]
  - Bronchitis chronic [Unknown]
  - Pulse abnormal [Unknown]
  - Ataxia [Unknown]
  - Lumbar spinal stenosis [Unknown]
  - Hemiparesis [Unknown]
  - Post laminectomy syndrome [Unknown]
  - Rotator cuff syndrome [Unknown]
  - Cystitis [Unknown]
  - Cardiac failure congestive [Unknown]
  - Myocardial infarction [Unknown]
  - Hypertensive heart disease [Unknown]
  - Intervertebral disc disorder [Unknown]
  - Spinal osteoarthritis [Unknown]
  - Coronary artery disease [Unknown]
  - Fatigue [Unknown]
  - Stent placement [Unknown]
  - Cauda equina syndrome [Unknown]
  - Major depression [Unknown]
  - Mitral valve incompetence [Unknown]
  - Chronic obstructive pulmonary disease [Unknown]
  - Cystocele [Unknown]
  - Metabolic syndrome [Unknown]
  - Radiculopathy [Unknown]
  - Angina pectoris [Unknown]
  - Barrett^s oesophagus [Unknown]
  - Chronic kidney disease [Unknown]
  - Tricuspid valve incompetence [Unknown]
  - Pain [Unknown]
  - Rectocele [Unknown]
  - Iron deficiency anaemia [Unknown]

NARRATIVE: CASE EVENT DATE: 201209
